FAERS Safety Report 4667845-4 (Version None)
Quarter: 2005Q2

REPORT INFORMATION
  Report Type: 
  Country: None (occurrence: None)
  Receive Date: 20050519
  Receipt Date: 20050519
  Transmission Date: 20051028
  Serious: Yes (Other)
  Sender: FDA-Public Use
  Company Number: None

PATIENT
  Age: 78 Year
  Sex: Female
  Weight: 67.4952 kg

DRUGS (1)
  1. CELEBREX [Suspect]
     Indication: ABDOMINAL PAIN
     Dosage: 1 DAILY HEMODIALYS
     Route: 010
     Dates: start: 20041214, end: 20041220

REACTIONS (2)
  - DRY MOUTH [None]
  - GLOSSODYNIA [None]
